APPROVED DRUG PRODUCT: METHOCARBAMOL AND ASPIRIN
Active Ingredient: ASPIRIN; METHOCARBAMOL
Strength: 325MG;400MG
Dosage Form/Route: TABLET;ORAL
Application: A081145 | Product #001
Applicant: JEROME STEVENS PHARMACEUTICALS INC
Approved: Jan 31, 1995 | RLD: No | RS: No | Type: DISCN